FAERS Safety Report 7444591-5 (Version None)
Quarter: 2011Q2

REPORT INFORMATION
  Report Type: 
  Country: None (occurrence: None)
  Receive Date: 20110426
  Receipt Date: 20110426
  Transmission Date: 20111010
  Serious: Yes (Other)
  Sender: FDA-Public Use
  Company Number: None

PATIENT
  Age: 36 Year
  Sex: Female
  Weight: 102.5129 kg

DRUGS (1)
  1. OMEPRAZOLE [Suspect]
     Indication: GASTROOESOPHAGEAL REFLUX DISEASE
     Dosage: 20 MG 1 PO
     Route: 048
     Dates: start: 20100925, end: 20110401

REACTIONS (28)
  - ABDOMINAL PAIN [None]
  - PAIN [None]
  - DISTURBANCE IN ATTENTION [None]
  - BACK PAIN [None]
  - MUSCLE SPASMS [None]
  - WEIGHT DECREASED [None]
  - DIARRHOEA [None]
  - VERTIGO [None]
  - DRY SKIN [None]
  - FEELING ABNORMAL [None]
  - DYSSTASIA [None]
  - DIZZINESS [None]
  - DRY MOUTH [None]
  - CONSTIPATION [None]
  - CONTUSION [None]
  - INSOMNIA [None]
  - DYSPNOEA [None]
  - CONFUSIONAL STATE [None]
  - DEPRESSION [None]
  - ANGER [None]
  - MIGRAINE [None]
  - DECREASED APPETITE [None]
  - ARTHRALGIA [None]
  - PRURITUS [None]
  - GAIT DISTURBANCE [None]
  - DISCOMFORT [None]
  - SOMNOLENCE [None]
  - HYPERSENSITIVITY [None]
